FAERS Safety Report 9157391 (Version 1)
Quarter: 2013Q1

REPORT INFORMATION
  Report Type: Spontaneous
  Country: US (occurrence: US)
  Receive Date: 20130312
  Receipt Date: 20130312
  Transmission Date: 20140127
  Serious: Yes (Other)
  Sender: FDA-Public Use
  Company Number: US-BAYER-2013-029284

PATIENT
  Age: 27 Year
  Sex: Female

DRUGS (2)
  1. ALEVE CAPLET/TABLET,MIDOL EXTENDED RELIEF CAPLET [Suspect]
  2. CONTRACEPTIVES NOS [Concomitant]
     Indication: DYSMENORRHOEA

REACTIONS (2)
  - Uterine polyp [None]
  - Drug ineffective [None]
